FAERS Safety Report 17612612 (Version 1)
Quarter: 2020Q2

REPORT INFORMATION
  Report Type: Spontaneous
  Country: US (occurrence: US)
  Receive Date: 20200401
  Receipt Date: 20200401
  Transmission Date: 20200713
  Serious: Yes (Other)
  Sender: FDA-Public Use
  Company Number: US-FRESENIUS KABI-FK202003336

PATIENT
  Age: 17 Year
  Sex: Male

DRUGS (1)
  1. MANNITOL (MANUFACTURER UNKNOWN) [Suspect]
     Active Substance: MANNITOL
     Indication: MENTAL STATUS CHANGES
     Dosage: UNKNOWN
     Route: 065

REACTIONS (2)
  - Electrolyte depletion [Recovered/Resolved]
  - Condition aggravated [Recovered/Resolved]
